FAERS Safety Report 6741985-8 (Version None)
Quarter: 2010Q2

REPORT INFORMATION
  Report Type: 
  Country: None (occurrence: None)
  Receive Date: 20100524
  Receipt Date: 20100416
  Transmission Date: 20101027
  Serious: No
  Sender: FDA-Public Use
  Company Number: MSTR-NO-0903S-0056

PATIENT
  Age: 67 Year
  Sex: Female
  Weight: 53 kg

DRUGS (3)
  1. METASTRON [Suspect]
     Indication: METASTATIC PAIN
     Dosage: SINGLE DOSE, I.V.
     Route: 042
     Dates: start: 20080613, end: 20080613
  2. FENTANYL (DUROTEP) [Concomitant]
  3. MORPHINE HYDROCHLORIDE (OPSO) [Concomitant]

REACTIONS (3)
  - BREAST CANCER FEMALE [None]
  - DEMENTIA [None]
  - MALIGNANT NEOPLASM PROGRESSION [None]
